FAERS Safety Report 19513510 (Version 2)
Quarter: 2022Q1

REPORT INFORMATION
  Report Type: Spontaneous
  Country: US (occurrence: US)
  Receive Date: 20210709
  Receipt Date: 20220316
  Transmission Date: 20220423
  Serious: Yes (Other)
  Sender: FDA-Public Use
  Company Number: US-GILEAD-2021-0539471

PATIENT
  Age: 42 Year
  Sex: Female
  Weight: 110.22 kg

DRUGS (42)
  1. STRIBILD [Suspect]
     Active Substance: COBICISTAT\ELVITEGRAVIR\EMTRICITABINE\TENOFOVIR DISOPROXIL FUMARATE
     Indication: HIV infection
     Dosage: UNK
     Route: 048
     Dates: start: 2006
  2. STRIBILD [Suspect]
     Active Substance: COBICISTAT\ELVITEGRAVIR\EMTRICITABINE\TENOFOVIR DISOPROXIL FUMARATE
     Dosage: UNK
     Route: 048
     Dates: start: 20160115, end: 201608
  3. TRUVADA [Suspect]
     Active Substance: EMTRICITABINE\TENOFOVIR DISOPROXIL FUMARATE
     Indication: HIV infection
     Dosage: UNK
     Route: 048
     Dates: start: 2006
  4. TRUVADA [Suspect]
     Active Substance: EMTRICITABINE\TENOFOVIR DISOPROXIL FUMARATE
     Dosage: UNK
     Route: 048
     Dates: start: 200611, end: 201510
  5. GENVOYA [Concomitant]
     Active Substance: COBICISTAT\ELVITEGRAVIR\EMTRICITABINE\TENOFOVIR ALAFENAMIDE FUMARATE
  6. KALETRA [Concomitant]
     Active Substance: LOPINAVIR\RITONAVIR
  7. PREZISTA [Concomitant]
     Active Substance: DARUNAVIR ETHANOLATE
  8. TRIUMEQ [Concomitant]
     Active Substance: ABACAVIR SULFATE\DOLUTEGRAVIR SODIUM\LAMIVUDINE
  9. ADVAIR HFA [Concomitant]
     Active Substance: FLUTICASONE PROPIONATE\SALMETEROL XINAFOATE
  10. ALBUTEROL SULFATE [Concomitant]
     Active Substance: ALBUTEROL SULFATE
  11. ARIPIPRAZOLE [Concomitant]
     Active Substance: ARIPIPRAZOLE
  12. ATORVASTATIN [Concomitant]
     Active Substance: ATORVASTATIN
  13. CHANTIX [Concomitant]
     Active Substance: VARENICLINE TARTRATE
  14. CYMBALTA [Concomitant]
     Active Substance: DULOXETINE HYDROCHLORIDE
  15. VALIUM [Concomitant]
     Active Substance: DIAZEPAM
  16. DULOXETINE [Concomitant]
     Active Substance: DULOXETINE
  17. DYAZIDE [Concomitant]
     Active Substance: HYDROCHLOROTHIAZIDE\TRIAMTERENE
  18. FAMOTIDINE [Concomitant]
     Active Substance: FAMOTIDINE
  19. FERROUS SULFATE [Concomitant]
     Active Substance: FERROUS SULFATE
  20. FISH OIL [Concomitant]
     Active Substance: FISH OIL
  21. FLUOXETINE [Concomitant]
     Active Substance: FLUOXETINE HYDROCHLORIDE
  22. GUAIFENESIN [Concomitant]
     Active Substance: GUAIFENESIN
  23. HYDRODIURIL [Concomitant]
     Active Substance: HYDROCHLOROTHIAZIDE
  24. IBUPROFEN [Concomitant]
     Active Substance: IBUPROFEN
  25. IMITREX [Concomitant]
     Active Substance: SUMATRIPTAN SUCCINATE
  26. INCRUSE ELLIPTA [Concomitant]
     Active Substance: UMECLIDINIUM BROMIDE
  27. MAXZIDE [Concomitant]
     Active Substance: HYDROCHLOROTHIAZIDE\TRIAMTERENE
  28. SINGULAIR [Concomitant]
     Active Substance: MONTELUKAST SODIUM
  29. VITAMINS NOS [Concomitant]
     Active Substance: VITAMINS
  30. NAPROXEN [Concomitant]
     Active Substance: NAPROXEN
  31. NICODERM CQ [Concomitant]
     Active Substance: NICOTINE
  32. OMEPRAZOLE [Concomitant]
     Active Substance: OMEPRAZOLE
  33. OXYCODONE [Concomitant]
     Active Substance: OXYCODONE
  34. PROAIR HFA [Concomitant]
     Active Substance: ALBUTEROL SULFATE
  35. QVAR [Concomitant]
     Active Substance: BECLOMETHASONE DIPROPIONATE
  36. SPIRIVA [Concomitant]
     Active Substance: TIOTROPIUM BROMIDE MONOHYDRATE
  37. TRAZODONE [Concomitant]
     Active Substance: TRAZODONE HYDROCHLORIDE
  38. TRIAMTERENE [Concomitant]
     Active Substance: TRIAMTERENE
  39. HERBALS\TURMERIC [Concomitant]
     Active Substance: HERBALS\TURMERIC
  40. VITAMIN B12 [Concomitant]
     Active Substance: CYANOCOBALAMIN
  41. VITAMIN C [Concomitant]
     Active Substance: ASCORBIC ACID
  42. VITAMIN D3 [Concomitant]
     Active Substance: CHOLECALCIFEROL

REACTIONS (10)
  - Osteoporosis [Not Recovered/Not Resolved]
  - Bone density decreased [Unknown]
  - Pain [Not Recovered/Not Resolved]
  - Emotional distress [Not Recovered/Not Resolved]
  - Anxiety [Not Recovered/Not Resolved]
  - Anhedonia [Not Recovered/Not Resolved]
  - Ankle fracture [Recovered/Resolved]
  - Hand fracture [Recovered/Resolved]
  - Depression [Not Recovered/Not Resolved]
  - Muscular weakness [Unknown]

NARRATIVE: CASE EVENT DATE: 20070101
